FAERS Safety Report 4798268-5 (Version None)
Quarter: 2005Q4

REPORT INFORMATION
  Report Type: 
  Country: None (occurrence: None)
  Receive Date: 20051011
  Receipt Date: 20051011
  Transmission Date: 20060501
  Serious: Yes (Hospitalization, Disabling)
  Sender: FDA-Public Use
  Company Number: None

PATIENT
  Age: 41 Year
  Sex: Female
  Weight: 81.6475 kg

DRUGS (4)
  1. ZOLOFT [Suspect]
     Indication: ANXIETY
     Dosage: 50 MG 1 TAB IN AM PO
     Route: 048
  2. ZOLOFT [Suspect]
     Indication: DEPRESSION
     Dosage: 50 MG 1 TAB IN AM PO
     Route: 048
  3. ZOLOFT [Suspect]
     Indication: PSYCHOTIC DISORDER
     Dosage: 50 MG 1 TAB IN AM PO
     Route: 048
  4. DMSA [Concomitant]

REACTIONS (10)
  - ADVERSE DRUG REACTION [None]
  - CONVULSION [None]
  - DEPRESSED LEVEL OF CONSCIOUSNESS [None]
  - DRUG WITHDRAWAL SYNDROME [None]
  - DYSKINESIA [None]
  - HALLUCINATION [None]
  - HALLUCINATION, AUDITORY [None]
  - MALAISE [None]
  - PSYCHOTIC DISORDER [None]
  - WEIGHT DECREASED [None]
